FAERS Safety Report 5852731-4 (Version None)
Quarter: 2008Q3

REPORT INFORMATION
  Report Type: 
  Country: None (occurrence: None)
  Receive Date: 20080818
  Receipt Date: 20080529
  Transmission Date: 20090109
  Serious: No
  Sender: FDA-Public Use
  Company Number: WAES 0806USA02421

PATIENT
  Age: 58 Year
  Sex: Male
  Weight: 89.3586 kg

DRUGS (7)
  1. JANUVIA [Suspect]
     Indication: DIABETES MELLITUS
     Dosage: 100 MG/DAILY/PO
     Route: 048
     Dates: start: 20070901, end: 20071101
  2. CRESTOR [Suspect]
     Indication: LIPIDS
     Dosage: 10 MG/DAILY/PO
     Route: 048
     Dates: start: 20071009
  3. AMLODIPINE BESYLATE [Concomitant]
  4. ASPIRIN [Concomitant]
  5. INDOMETHACIN [Concomitant]
  6. METFORMIN HCL [Concomitant]
  7. OMEPRAZOLE [Concomitant]

REACTIONS (1)
  - HEPATIC ENZYME INCREASED [None]
